FAERS Safety Report 8038488-X (Version None)
Quarter: 2012Q1

REPORT INFORMATION
  Report Type: 
  Country: None (occurrence: None)
  Receive Date: 20120111
  Receipt Date: 20111208
  Transmission Date: 20120608
  Serious: No
  Sender: FDA-Public Use
  Company Number: US-AMGEN-USASP2011065425

PATIENT
  Age: 63 Year
  Sex: Female

DRUGS (3)
  1. ENBREL [Suspect]
     Indication: PSORIASIS
  2. HUMIRA [Concomitant]
  3. ENBREL [Suspect]
     Indication: PSORIATIC ARTHROPATHY
     Dosage: 50 MG, QWK
     Dates: start: 20050101

REACTIONS (5)
  - PSORIASIS [None]
  - INJECTION SITE PAIN [None]
  - DRUG EFFECT DECREASED [None]
  - INJECTION SITE HAEMATOMA [None]
  - ARTHRITIS [None]
